FAERS Safety Report 19725281 (Version 1)
Quarter: 2021Q3

REPORT INFORMATION
  Report Type: Spontaneous
  Country: US (occurrence: US)
  Receive Date: 20210819
  Receipt Date: 20210819
  Transmission Date: 20211014
  Serious: Yes (Hospitalization)
  Sender: FDA-Public Use
  Company Number: None

PATIENT
  Sex: Male

DRUGS (1)
  1. DESCOVY [Suspect]
     Active Substance: EMTRICITABINE\TENOFOVIR ALAFENAMIDE FUMARATE
     Indication: HETEROSEXUALITY
     Route: 048
     Dates: start: 20201114

REACTIONS (6)
  - Cardiac disorder [None]
  - Renal disorder [None]
  - Meningitis [None]
  - Therapy interrupted [None]
  - Neck pain [None]
  - Inflammation [None]
